FAERS Safety Report 4329368-1 (Version None)
Quarter: 2004Q1

REPORT INFORMATION
  Report Type: 
  Country: None (occurrence: None)
  Receive Date: 20040331
  Receipt Date: 20040331
  Transmission Date: 20041129
  Serious: Yes (Life-Threatening)
  Sender: FDA-Public Use
  Company Number: None

PATIENT
  Age: 66 Year
  Sex: Male
  Weight: 74.8435 kg

DRUGS (1)
  1. ED-FLEX [Suspect]
     Dosage: 1-2 - 4X DAY [AS NEEDED]
     Dates: start: 20040206

REACTIONS (7)
  - DYSPHAGIA [None]
  - OROPHARYNGEAL SWELLING [None]
  - PRURITUS [None]
  - SWELLING [None]
  - SWELLING FACE [None]
  - TREATMENT NONCOMPLIANCE [None]
  - URTICARIA [None]
